FAERS Safety Report 6282139-1 (Version None)
Quarter: 2009Q3

REPORT INFORMATION
  Report Type: 
  Country: None (occurrence: None)
  Receive Date: 20090721
  Receipt Date: 20090721
  Transmission Date: 20100115
  Serious: Yes (Life-Threatening)
  Sender: FDA-Public Use
  Company Number: None

PATIENT

DRUGS (1)
  1. RETROVIR [Suspect]
     Dosage: 20 MG/ML VIAL

REACTIONS (2)
  - MEDICATION ERROR [None]
  - PRODUCT LABEL CONFUSION [None]
